FAERS Safety Report 9915531 (Version 2)
Quarter: 2014Q1

REPORT INFORMATION
  Report Type: Spontaneous
  Country: IT (occurrence: IT)
  Receive Date: 20140221
  Receipt Date: 20140306
  Transmission Date: 20141002
  Serious: Yes (Other)
  Sender: FDA-Public Use
  Company Number: IT-AMGEN-ITASP2014012135

PATIENT
  Age: 70 Year
  Sex: Female

DRUGS (3)
  1. ENBREL [Suspect]
     Indication: RHEUMATOID ARTHRITIS
     Dosage: 50 MG, WEEKLY
     Route: 058
     Dates: start: 20090701
  2. TRITTICO [Concomitant]
     Dosage: UNK
  3. PANTORC [Concomitant]
     Dosage: UNK

REACTIONS (1)
  - Deep vein thrombosis [Recovered/Resolved with Sequelae]
